FAERS Safety Report 4500641-7 (Version None)
Quarter: 2004Q4

REPORT INFORMATION
  Report Type: 
  Country: None (occurrence: None)
  Receive Date: 20041115
  Receipt Date: 20041103
  Transmission Date: 20050328
  Serious: Yes (Death, Hospitalization, Other)
  Sender: FDA-Public Use
  Company Number: DE-AMGEN-UK095693

PATIENT
  Sex: Male
  Weight: 83 kg

DRUGS (3)
  1. NEULASTA [Suspect]
     Indication: CHEMOTHERAPY
     Route: 058
     Dates: start: 20040811, end: 20040929
  2. ALEMTUZUMAB [Suspect]
     Route: 058
     Dates: start: 20040804, end: 20041001
  3. CO-TRIMOXAZOLE [Concomitant]
     Route: 065
     Dates: start: 20040926, end: 20041004

REACTIONS (6)
  - ACUTE MYELOID LEUKAEMIA [None]
  - BLAST CELL PROLIFERATION [None]
  - CYTOMEGALOVIRUS INFECTION [None]
  - INFECTION [None]
  - MYELODYSPLASTIC SYNDROME [None]
  - PANCYTOPENIA [None]
